FAERS Safety Report 15151669 (Version 1)
Quarter: 2018Q3

REPORT INFORMATION
  Report Type: Spontaneous
  Country: GB (occurrence: GB)
  Receive Date: 20180716
  Receipt Date: 20180716
  Transmission Date: 20181010
  Serious: Yes (Disabling, Other)
  Sender: FDA-Public Use
  Company Number: GB-009507513-1807GBR003029

PATIENT
  Age: 20 Year
  Sex: Female
  Weight: 54 kg

DRUGS (1)
  1. NEXPLANON [Suspect]
     Active Substance: ETONOGESTREL
     Indication: CONTRACEPTION
     Dates: start: 20171201, end: 20180327

REACTIONS (7)
  - Dizziness [Recovered/Resolved with Sequelae]
  - Panic reaction [Recovered/Resolved with Sequelae]
  - Fear [Recovered/Resolved]
  - Nausea [Recovered/Resolved with Sequelae]
  - Anxiety [Recovered/Resolved with Sequelae]
  - Palpitations [Recovered/Resolved with Sequelae]
  - Paranoia [Recovered/Resolved with Sequelae]

NARRATIVE: CASE EVENT DATE: 20180219
